FAERS Safety Report 5611051-3 (Version None)
Quarter: 2008Q1

REPORT INFORMATION
  Report Type: 
  Country: None (occurrence: None)
  Receive Date: 20080201
  Receipt Date: 20080128
  Transmission Date: 20080703
  Serious: Yes (Other)
  Sender: FDA-Public Use
  Company Number: JP-ASTRAZENECA-2007AP05781

PATIENT
  Age: 12144 Day
  Sex: Female

DRUGS (1)
  1. ZOLADEX BN [Suspect]
     Indication: ENDOMETRIOSIS
     Route: 058
     Dates: start: 20070305, end: 20070817

REACTIONS (1)
  - INJECTION SITE HAEMORRHAGE [None]
